FAERS Safety Report 21668217 (Version 1)
Quarter: 2022Q4

REPORT INFORMATION
  Report Type: Report from Study
  Country: US (occurrence: US)
  Receive Date: 20221201
  Receipt Date: 20221201
  Transmission Date: 20230113
  Serious: No
  Sender: FDA-Public Use
  Company Number: US-ABBVIE-4172751

PATIENT
  Sex: Female

DRUGS (1)
  1. HUMIRA [Suspect]
     Active Substance: ADALIMUMAB
     Indication: Hidradenitis
     Route: 058

REACTIONS (5)
  - Constipation [Recovering/Resolving]
  - Abdominal discomfort [Recovering/Resolving]
  - Abdominal distension [Recovering/Resolving]
  - Eructation [Recovering/Resolving]
  - Abdominal pain [Recovering/Resolving]
